FAERS Safety Report 8511564-0 (Version None)
Quarter: 2012Q3

REPORT INFORMATION
  Report Type: 
  Country: None (occurrence: None)
  Receive Date: 20120716
  Receipt Date: 20120709
  Transmission Date: 20120928
  Serious: Yes (Other)
  Sender: FDA-Public Use
  Company Number: PHHY2012IT060241

PATIENT
  Age: 27 Year
  Sex: Male

DRUGS (1)
  1. TEGRETOL [Suspect]
     Indication: EPILEPSY

REACTIONS (3)
  - LIVER DISORDER [None]
  - ERECTILE DYSFUNCTION [None]
  - NEUROLOGICAL DECOMPENSATION [None]
